FAERS Safety Report 5765588-7 (Version None)
Quarter: 2008Q2

REPORT INFORMATION
  Report Type: 
  Country: None (occurrence: None)
  Receive Date: 20080606
  Receipt Date: 20080606
  Transmission Date: 20081010
  Serious: Yes (Hospitalization)
  Sender: FDA-Public Use
  Company Number: None

PATIENT
  Age: 52 Year
  Sex: Male
  Weight: 87.09 kg

DRUGS (1)
  1. PERMETHRIN [Suspect]
     Indication: ACARODERMATITIS
     Dosage: OTHER  TOP
     Route: 061
     Dates: start: 20080318, end: 20080320

REACTIONS (1)
  - DRUG HYPERSENSITIVITY [None]
